FAERS Safety Report 13191587 (Version 2)
Quarter: 2018Q3

REPORT INFORMATION
  Report Type: Spontaneous
  Country: US (occurrence: US)
  Receive Date: 20170207
  Receipt Date: 20180713
  Transmission Date: 20181010
  Serious: Yes (Other)
  Sender: FDA-Public Use
  Company Number: US-WEST-WARD PHARMACEUTICALS CORP.-US-H14001-17-00247

PATIENT
  Age: 56 Year
  Sex: Female
  Weight: 88 kg

DRUGS (6)
  1. EPINEPHRINE, LIDOCAINE 1.5 % [Concomitant]
     Indication: NERVE BLOCK
     Dosage: TEST DOSE
     Route: 065
  2. MIDAZOLAM [Concomitant]
     Active Substance: MIDAZOLAM HYDROCHLORIDE
     Indication: ANXIOLYTIC THERAPY
     Route: 042
  3. OXYGEN. [Concomitant]
     Active Substance: OXYGEN
     Indication: PRODUCT USED FOR UNKNOWN INDICATION
     Route: 045
  4. LIDOCAINE. [Suspect]
     Active Substance: LIDOCAINE
     Indication: NERVE BLOCK
     Dosage: TEST DOSE
     Route: 058
  5. CHLORHEXIDINE [Concomitant]
     Active Substance: CHLORHEXIDINE
     Indication: PRODUCT USED FOR UNKNOWN INDICATION
     Route: 061
  6. FENTANYL. [Concomitant]
     Active Substance: FENTANYL
     Indication: ANXIOLYTIC THERAPY
     Route: 042

REACTIONS (5)
  - Neuromuscular blockade [Recovered/Resolved]
  - Hypotension [Recovered/Resolved]
  - Off label use [Unknown]
  - Nausea [Unknown]
  - Injection site extravasation [Recovered/Resolved]
